FAERS Safety Report 18567322 (Version 5)
Quarter: 2021Q1

REPORT INFORMATION
  Report Type: Report from Study
  Country: JP (occurrence: JP)
  Receive Date: 20201201
  Receipt Date: 20210104
  Transmission Date: 20210419
  Serious: Yes (Hospitalization, Other)
  Sender: FDA-Public Use
  Company Number: JP-BRISTOL-MYERS SQUIBB COMPANY-BMS-2020-101015

PATIENT
  Age: 65 Year
  Sex: Male
  Weight: 73 kg

DRUGS (13)
  1. ACETAMINOPHEN. [Concomitant]
     Active Substance: ACETAMINOPHEN
     Indication: HYPOPHYSITIS
     Dosage: UNK
     Route: 048
     Dates: start: 20200209
  2. LEVOTHYROXINE SODIUM. [Concomitant]
     Active Substance: LEVOTHYROXINE SODIUM
     Indication: HYPOTHYROIDISM
     Dosage: UNK
     Route: 065
     Dates: start: 20191227
  3. FAMOTIDINE. [Concomitant]
     Active Substance: FAMOTIDINE
     Indication: PRODUCT USED FOR UNKNOWN INDICATION
     Dosage: UNK
     Route: 065
     Dates: start: 20200213
  4. HEPARINOID [Concomitant]
     Active Substance: CHONDROITIN SULFATE (BOVINE)
     Indication: DRY SKIN
     Dosage: UNK
     Route: 065
     Dates: start: 20200107
  5. PNEUMOCOCCAL VACCINE POLYVALENT NOS [Concomitant]
     Active Substance: PNEUMOCOCCAL VACCINE POLYVALENT
     Indication: PROPHYLAXIS
     Dosage: UNK
     Route: 058
     Dates: start: 20191028
  6. IPILIMUMAB [Suspect]
     Active Substance: IPILIMUMAB
     Indication: OESOPHAGEAL CARCINOMA
     Dosage: 72 MILLIGRAM (1 MG/KG)
     Route: 042
     Dates: start: 20191112, end: 20201228
  7. HYDROCORTISON [HYDROCORTISONE] [Concomitant]
     Indication: HYPOPHYSITIS
     Dosage: 20 MILLIGRAM
     Route: 048
     Dates: start: 20201119, end: 20201119
  8. LEVOTHYROXINE SODIUM. [Concomitant]
     Active Substance: LEVOTHYROXINE SODIUM
     Indication: HYPOPHYSITIS
  9. INFLUENZA HA VACCINE [Concomitant]
     Active Substance: INFLUENZA VIRUS VACCINE
     Indication: PROPHYLAXIS
     Dosage: UNK
     Route: 058
     Dates: start: 20191019
  10. NIVOLUMAB [Suspect]
     Active Substance: NIVOLUMAB
     Indication: OESOPHAGEAL CARCINOMA
     Dosage: 216 MILLIGRAM (3 MG/KG)
     Route: 042
     Dates: start: 20191112, end: 20201228
  11. HYDROCORTISONE. [Concomitant]
     Active Substance: HYDROCORTISONE
     Indication: HYPOPHYSITIS
     Dosage: 20 MILLIGRAM
     Route: 048
     Dates: start: 20200415
  12. HYDROCORTISON [HYDROCORTISONE] [Concomitant]
     Dosage: 30 MILLIGRAM
     Route: 048
     Dates: start: 20201120, end: 20201120
  13. HYDROCORTISON [HYDROCORTISONE] [Concomitant]
     Dosage: 20 MILLIGRAM
     Route: 048
     Dates: start: 20201121, end: 20201122

REACTIONS (1)
  - Fulminant type 1 diabetes mellitus [Recovering/Resolving]

NARRATIVE: CASE EVENT DATE: 20201124
